FAERS Safety Report 11213428 (Version 1)
Quarter: 2015Q2

REPORT INFORMATION
  Report Type: Spontaneous
  Country: JP (occurrence: JP)
  Receive Date: 20150623
  Receipt Date: 20150623
  Transmission Date: 20150821
  Serious: Yes (Other)
  Sender: FDA-Public Use
  Company Number: JP-ROCHE-1596203

PATIENT
  Sex: Female

DRUGS (2)
  1. HERCEPTIN [Suspect]
     Active Substance: TRASTUZUMAB
     Indication: PRODUCT USED FOR UNKNOWN INDICATION
     Dosage: DOSAGE IS UNCERTAIN.
     Route: 041
  2. PERJETA [Suspect]
     Active Substance: PERTUZUMAB
     Indication: PRODUCT USED FOR UNKNOWN INDICATION
     Dosage: 420MG/14ML
     Route: 041

REACTIONS (1)
  - Cerebral infarction [Unknown]
